FAERS Safety Report 5124452-7 (Version None)
Quarter: 2006Q4

REPORT INFORMATION
  Report Type: 
  Country: None (occurrence: None)
  Receive Date: 20060816
  Receipt Date: 20060622
  Transmission Date: 20070319
  Serious: No
  Sender: FDA-Public Use
  Company Number: US200604002214

PATIENT
  Age: 70 Year
  Sex: Male
  Weight: 83.9 kg

DRUGS (8)
  1. CIALIS [Suspect]
     Indication: ERECTILE DYSFUNCTION
     Dosage: 20 MG
     Dates: start: 20060314, end: 20060314
  2. PAXIL [Concomitant]
  3. PAROXETINE/SWE/PAROXETINE) [Concomitant]
  4. BENADRYL (AMMONIUM CHLORIDE , DIPHENHYDRAMINE HYDROCHLORIDE,MENTHOL, S [Concomitant]
  5. AMBIEN [Concomitant]
  6. CORTISOL [Concomitant]
  7. PRILOSEC [Concomitant]
  8. PEPCID [Concomitant]

REACTIONS (13)
  - ASTHENIA [None]
  - ATONIC URINARY BLADDER [None]
  - BACK PAIN [None]
  - DISCOMFORT [None]
  - DYSAESTHESIA [None]
  - FEELING ABNORMAL [None]
  - HYPOAESTHESIA [None]
  - INCONTINENCE [None]
  - LETHARGY [None]
  - MALAISE [None]
  - MUSCLE TIGHTNESS [None]
  - PAIN IN EXTREMITY [None]
  - PARALYSIS [None]
